FAERS Safety Report 6556798-X (Version None)
Quarter: 2010Q1

REPORT INFORMATION
  Report Type: 
  Country: None (occurrence: None)
  Receive Date: 20100128
  Receipt Date: 20100115
  Transmission Date: 20100710
  Serious: Yes (Other)
  Sender: FDA-Public Use
  Company Number: PHEH2010US00880

PATIENT
  Sex: Female

DRUGS (3)
  1. RECLAST [Suspect]
     Dosage: UNK
     Dates: start: 20091015, end: 20091015
  2. ZOCOR [Concomitant]
  3. LOVAZA [Concomitant]

REACTIONS (4)
  - INFECTION [None]
  - JAW FRACTURE [None]
  - PAIN IN JAW [None]
  - TOOTH FRACTURE [None]
